FAERS Safety Report 25240099 (Version 1)
Quarter: 2025Q2

REPORT INFORMATION
  Report Type: Spontaneous
  Country: US (occurrence: None)
  Receive Date: 20250425
  Receipt Date: 20250425
  Transmission Date: 20250716
  Serious: Yes (Hospitalization)
  Sender: FDA-CTU
  Company Number: None

PATIENT
  Age: 37 Year
  Sex: Female

DRUGS (1)
  1. PADCEV [Suspect]
     Active Substance: ENFORTUMAB VEDOTIN-EJFV
     Indication: Colon cancer
     Dates: start: 20250411

REACTIONS (5)
  - Rash [None]
  - Pain [None]
  - Burning sensation [None]
  - Pruritus [None]
  - Skin tightness [None]

NARRATIVE: CASE EVENT DATE: 20250425
